FAERS Safety Report 21483457 (Version 1)
Quarter: 2022Q4

REPORT INFORMATION
  Report Type: Spontaneous
  Country: IN (occurrence: IN)
  Receive Date: 20221020
  Receipt Date: 20221020
  Transmission Date: 20230113
  Serious: Yes (Other)
  Sender: FDA-Public Use
  Company Number: IN-MSNLABS-2022MSNLIT01243

PATIENT

DRUGS (2)
  1. PACLITAXEL [Suspect]
     Active Substance: PACLITAXEL
     Indication: Thyroid cancer metastatic
     Dosage: 9 CYCLES
     Route: 065
     Dates: start: 20200825, end: 20201024
  2. CARBOPLATIN [Suspect]
     Active Substance: CARBOPLATIN
     Indication: Thyroid cancer metastatic
     Dosage: 9 CYCLES
     Route: 065
     Dates: start: 20200825, end: 20201024

REACTIONS (2)
  - Drug ineffective [Unknown]
  - Disease progression [Unknown]
